FAERS Safety Report 7653460-7 (Version None)
Quarter: 2011Q3

REPORT INFORMATION
  Report Type: 
  Country: None (occurrence: None)
  Receive Date: 20110803
  Receipt Date: 20110802
  Transmission Date: 20111222
  Serious: Yes (Other)
  Sender: FDA-Public Use
  Company Number: US-PFIZER INC-2011160106

PATIENT
  Sex: Male
  Weight: 69.388 kg

DRUGS (3)
  1. LIPITOR [Suspect]
     Indication: BLOOD CHOLESTEROL INCREASED
     Dosage: 20 MG, 1X/DAY
     Route: 048
  2. FLEXERIL [Concomitant]
     Dosage: UNK, 1X/DAY
  3. LIPITOR [Suspect]
     Dosage: 10 MG, 1X/DAY
     Dates: end: 20110701

REACTIONS (8)
  - TENDONITIS [None]
  - MUSCLE SPASMS [None]
  - FATIGUE [None]
  - GASTROINTESTINAL DISORDER [None]
  - DEPRESSED MOOD [None]
  - ARTHRALGIA [None]
  - MYALGIA [None]
  - MUSCLE DISORDER [None]
